FAERS Safety Report 24210708 (Version 1)
Quarter: 2024Q3

REPORT INFORMATION
  Report Type: Spontaneous
  Country: CN (occurrence: CN)
  Receive Date: 20240814
  Receipt Date: 20240814
  Transmission Date: 20241016
  Serious: Yes (Disabling)
  Sender: BAXTER
  Company Number: None

PATIENT
  Age: 47 Year
  Sex: Female
  Weight: 61 kg

DRUGS (3)
  1. CYCLOPHOSPHAMIDE [Suspect]
     Active Substance: CYCLOPHOSPHAMIDE
     Indication: Chemotherapy
     Dosage: 0.9 G, ONE TIME IN ONE DAY, DILUTED WITH 30 ML OF 0.9% SODIUM CHLORIDE, ADJUVANT CHEMOTHERAPY, AT 15
     Route: 041
     Dates: start: 20240731, end: 20240731
  2. CYCLOPHOSPHAMIDE [Suspect]
     Active Substance: CYCLOPHOSPHAMIDE
     Indication: Neoplasm malignant
  3. SODIUM CHLORIDE [Suspect]
     Active Substance: SODIUM CHLORIDE
     Indication: Medication dilution
     Dosage: (0.9%) 30 ML, ONE TIME IN ONE DAY, USED TO DILUTE 0.9 G OF CYCLOPHOSPHAMIDE, ADJUVANT CHEMOTHERAPY,
     Route: 041
     Dates: start: 20240731, end: 20240731

REACTIONS (3)
  - Hepatic function abnormal [Recovering/Resolving]
  - Aspartate aminotransferase increased [Unknown]
  - Haemoglobin decreased [Unknown]

NARRATIVE: CASE EVENT DATE: 20240801
